FAERS Safety Report 9440137 (Version 2)
Quarter: 2013Q3

REPORT INFORMATION
  Report Type: Spontaneous
  Country: US (occurrence: US)
  Receive Date: 20130805
  Receipt Date: 20130917
  Transmission Date: 20140515
  Serious: Yes (Other)
  Sender: FDA-Public Use
  Company Number: US-PFIZER INC-2013226677

PATIENT
  Age: 39 Year
  Sex: Female
  Weight: 72.11 kg

DRUGS (4)
  1. PRISTIQ [Suspect]
     Indication: MAJOR DEPRESSION
     Dosage: UNK
  2. PRISTIQ [Suspect]
     Indication: BIPOLAR DISORDER
  3. NEURONTIN [Concomitant]
     Dosage: UNK
  4. KEPPRA [Concomitant]
     Dosage: UNK

REACTIONS (8)
  - Suicide attempt [Unknown]
  - Suicidal ideation [Unknown]
  - Depression [Unknown]
  - Dyspnoea [Unknown]
  - Feeling abnormal [Unknown]
  - Abdominal discomfort [Unknown]
  - Dyspepsia [Unknown]
  - Off label use [Unknown]
